FAERS Safety Report 21884998 (Version 5)
Quarter: 2023Q2

REPORT INFORMATION
  Report Type: Spontaneous
  Country: JP (occurrence: JP)
  Receive Date: 20230119
  Receipt Date: 20230517
  Transmission Date: 20230722
  Serious: Yes (Death, Life-Threatening, Other)
  Sender: FDA-Public Use
  Company Number: JP-BIOCODEX2-2023000012

PATIENT
  Age: 1 Year
  Sex: Female

DRUGS (4)
  1. DIACOMIT [Suspect]
     Active Substance: STIRIPENTOL
     Indication: Severe myoclonic epilepsy of infancy
     Dosage: 90 MILLIGRAM
     Route: 048
     Dates: start: 20221223, end: 20230103
  2. VALPROATE SODIUM [Concomitant]
     Active Substance: VALPROATE SODIUM
     Indication: Severe myoclonic epilepsy of infancy
     Dosage: 360 MILLIGRAM/DAY
     Route: 048
     Dates: start: 20220708, end: 20230103
  3. CLOBAZAM [Concomitant]
     Active Substance: CLOBAZAM
     Indication: Severe myoclonic epilepsy of infancy
     Dosage: 3.6 MILLIGRAM/DAY
     Route: 048
     Dates: start: 20221107, end: 20230103
  4. LEVOCARNITINE HYDROCHLORIDE [Concomitant]
     Active Substance: LEVOCARNITINE HYDROCHLORIDE
     Indication: Carnitine deficiency
     Dosage: 2 MILLILITE/DAY
     Route: 048
     Dates: start: 20220708, end: 20230103

REACTIONS (3)
  - Cardiac arrest [Fatal]
  - Somnolence [Unknown]
  - Decreased appetite [Unknown]

NARRATIVE: CASE EVENT DATE: 20221228
